FAERS Safety Report 13412824 (Version 3)
Quarter: 2022Q2

REPORT INFORMATION
  Report Type: Spontaneous
  Country: US (occurrence: US)
  Receive Date: 20170406
  Receipt Date: 20220530
  Transmission Date: 20220721
  Serious: No
  Sender: FDA-Public Use
  Company Number: US-JNJFOC-20170309507

PATIENT
  Sex: Male

DRUGS (5)
  1. RISPERDAL [Suspect]
     Active Substance: RISPERIDONE
     Indication: Bipolar disorder
     Dosage: VARYING DOSE OF 0.25, 0.5, 01 AND 02 MG
     Route: 048
     Dates: start: 20040219, end: 20080825
  2. RISPERDAL [Suspect]
     Active Substance: RISPERIDONE
     Indication: Anger
  3. RISPERDAL [Suspect]
     Active Substance: RISPERIDONE
     Indication: Depression
  4. LAMICTAL [Suspect]
     Active Substance: LAMOTRIGINE
     Indication: Product used for unknown indication
     Route: 048
  5. LAMOTRIGINE [Suspect]
     Active Substance: LAMOTRIGINE
     Indication: Product used for unknown indication
     Route: 048

REACTIONS (6)
  - Emotional disorder [Unknown]
  - Gynaecomastia [Unknown]
  - Akathisia [Unknown]
  - Weight increased [Unknown]
  - Product dose omission in error [Unknown]
  - Product prescribing error [Unknown]

NARRATIVE: CASE EVENT DATE: 20060101
